FAERS Safety Report 9879897 (Version 2)
Quarter: 2014Q1

REPORT INFORMATION
  Report Type: Spontaneous
  Country: US (occurrence: US)
  Receive Date: 20140206
  Receipt Date: 20140206
  Transmission Date: 20141002
  Serious: Yes (Other)
  Sender: FDA-Public Use
  Company Number: US-GE HEALTHCARE MEDICAL DIAGNOSTICS-OSCN-PR-1010S-0263

PATIENT
  Age: 51 Year
  Sex: Male

DRUGS (23)
  1. OMNISCAN [Suspect]
     Indication: PRODUCT USED FOR UNKNOWN INDICATION
     Route: 042
  2. MAGNEVIST [Suspect]
     Indication: DYSPHAGIA
     Route: 042
     Dates: start: 20050616, end: 20050616
  3. MAGNEVIST [Suspect]
     Indication: PRODUCT USED FOR UNKNOWN INDICATION
     Route: 042
     Dates: start: 20060524, end: 20060524
  4. MAGNEVIST [Suspect]
     Indication: PRODUCT USED FOR UNKNOWN INDICATION
     Route: 042
  5. OPTIMARK [Suspect]
     Indication: PRODUCT USED FOR UNKNOWN INDICATION
  6. GABAPENTIN [Concomitant]
  7. OXYCODONE [Concomitant]
  8. DILAUDID [Concomitant]
  9. MORPHINE SULFATE [Concomitant]
  10. POTASSIUM [Concomitant]
  11. BACLOFEN [Concomitant]
  12. OMEPRAZOLE [Concomitant]
  13. VITAMIN C [Concomitant]
  14. OMNIPAQUE [Concomitant]
  15. ACIPHEX [Concomitant]
  16. MELATONIN [Concomitant]
  17. OXYCONTIN [Concomitant]
  18. LYRICA [Concomitant]
  19. BACLOFEN [Concomitant]
  20. GABAPENTIN [Concomitant]
  21. TOCAINIDE [Concomitant]
  22. HYDROMORPHONE [Concomitant]
  23. METHADONE [Concomitant]

REACTIONS (1)
  - Nephrogenic systemic fibrosis [Not Recovered/Not Resolved]
